FAERS Safety Report 13877292 (Version 1)
Quarter: 2017Q3

REPORT INFORMATION
  Report Type: Spontaneous
  Country: US (occurrence: US)
  Receive Date: 20170817
  Receipt Date: 20170817
  Transmission Date: 20171127
  Serious: Yes (Hospitalization)
  Sender: FDA-Public Use
  Company Number: US-BAYER-2017-152227

PATIENT
  Age: 64 Year
  Sex: Male
  Weight: 103.4 kg

DRUGS (24)
  1. PLAVIX [Suspect]
     Active Substance: CLOPIDOGREL BISULFATE
  2. ISOSORBIDE MONONITRATE. [Concomitant]
     Active Substance: ISOSORBIDE MONONITRATE
  3. SYMBICORT [Concomitant]
     Active Substance: BUDESONIDE\FORMOTEROL FUMARATE DIHYDRATE
     Dosage: UNK (4.5 MCG/ACT)
  4. BAYER ASPIRIN [Suspect]
     Active Substance: ASPIRIN
     Dosage: UNK
  5. GUAIFENESIN. [Concomitant]
     Active Substance: GUAIFENESIN
  6. LIPITOR [Concomitant]
     Active Substance: ATORVASTATIN CALCIUM
  7. TRICOR [Concomitant]
     Active Substance: FENOFIBRATE
  8. FENOFIBRATE. [Concomitant]
     Active Substance: FENOFIBRATE
     Dosage: 1 DF, QD
     Route: 048
  9. BACTRIM [Concomitant]
     Active Substance: SULFAMETHOXAZOLE\TRIMETHOPRIM
     Dosage: 1 DF, BID
     Route: 048
  10. AMIODARONE HCL [Concomitant]
     Active Substance: AMIODARONE HYDROCHLORIDE
  11. OXYCODONE [Concomitant]
     Active Substance: OXYCODONE
  12. LOPRESSOR [Concomitant]
     Active Substance: METOPROLOL TARTRATE
  13. ATORVASTATIN CALCIUM. [Concomitant]
     Active Substance: ATORVASTATIN CALCIUM
     Dosage: 1 DF, QD
     Route: 048
  14. AEROSOL SPITZNER [Concomitant]
     Dosage: 2 DF, BID (PUFFS)
     Route: 055
  15. ZETIA [Concomitant]
     Active Substance: EZETIMIBE
  16. XANAX [Concomitant]
     Active Substance: ALPRAZOLAM
  17. PANTOPRAZOLE SODIUM. [Concomitant]
     Active Substance: PANTOPRAZOLE SODIUM
  18. ACETAMINOPHEN. [Concomitant]
     Active Substance: ACETAMINOPHEN
  19. APIXABAN [Suspect]
     Active Substance: APIXABAN
     Dosage: 1 DF, UNK
     Route: 048
  20. CYANOCOBALAMIN. [Concomitant]
     Active Substance: CYANOCOBALAMIN
  21. NITROGLYCERIN. [Concomitant]
     Active Substance: NITROGLYCERIN
  22. FLUTICASONE. [Concomitant]
     Active Substance: FLUTICASONE
  23. METOPROLOL TARTRATE. [Concomitant]
     Active Substance: METOPROLOL TARTRATE
     Dosage: 1 DF, BID (WITH FOOD)
     Route: 048
  24. ALBUTEROL SULFATE. [Concomitant]
     Active Substance: ALBUTEROL SULFATE
     Dosage: UNK (2.5MG/3ML)

REACTIONS (3)
  - Atrial fibrillation [Unknown]
  - Chest pain [Unknown]
  - Acute coronary syndrome [None]

NARRATIVE: CASE EVENT DATE: 2017
